FAERS Safety Report 16575024 (Version 7)
Quarter: 2020Q3

REPORT INFORMATION
  Report Type: Report from Study
  Country: None (occurrence: BE)
  Receive Date: 20190715
  Receipt Date: 20200920
  Transmission Date: 20201102
  Serious: Yes (Hospitalization)
  Sender: FDA-Public Use
  Company Number: BE-ABBVIE-19K-013-2850209-00

PATIENT
  Sex: Male

DRUGS (10)
  1. DUODOPA [Suspect]
     Active Substance: CARBIDOPA\LEVODOPA
     Dosage: DOSES CONTINUOUSLY MONITORED AND ADAPTED
     Route: 050
     Dates: start: 20131029, end: 20190206
  2. ASAFLOW [Concomitant]
     Active Substance: ASPIRIN
     Indication: PRODUCT USED FOR UNKNOWN INDICATION
  3. DUODOPA [Suspect]
     Active Substance: CARBIDOPA\LEVODOPA
     Dosage: MD=8ML, CD=3.5ML/HR DURING 16HRS, ED=3ML?DOSE DECREASED
     Route: 050
     Dates: start: 20190911
  4. DUODOPA [Suspect]
     Active Substance: CARBIDOPA\LEVODOPA
     Dosage: MD=8.5ML, CD=3.5ML/HR DURING 16HRS, ED=3ML
     Route: 050
     Dates: start: 2020, end: 20200626
  5. DUODOPA [Suspect]
     Active Substance: CARBIDOPA\LEVODOPA
     Dosage: MD=11.5ML, CD=3.3ML/HR DURING 16HRS, ED=3ML
     Route: 050
     Dates: start: 20200123, end: 2020
  6. STALEVO [Concomitant]
     Active Substance: CARBIDOPA\ENTACAPONE\LEVODOPA
     Indication: PARKINSON^S DISEASE
     Dosage: FORM STRENGTH: 200MG/50MG/200MG; RESCUE MEDICATION
  7. DUODOPA [Suspect]
     Active Substance: CARBIDOPA\LEVODOPA
     Dosage: UNKNOWN DOSAGES
     Route: 050
     Dates: end: 20200123
  8. DUODOPA [Suspect]
     Active Substance: CARBIDOPA\LEVODOPA
     Dosage: MD=8.5ML, CD=3.3ML/HR DURING 16HRS, ED=3ML
     Route: 050
     Dates: start: 20200626
  9. DUODOPA [Suspect]
     Active Substance: CARBIDOPA\LEVODOPA
     Indication: PARKINSON^S DISEASE
     Dosage: MD=8ML, CD=4.5ML/HR DURING 16HRS, ED=2ML
     Route: 050
     Dates: start: 20130204, end: 20131029
  10. DUODOPA [Suspect]
     Active Substance: CARBIDOPA\LEVODOPA
     Dosage: MD=9ML, CD=3.8ML/HR DURING 16HRS, ED=3.5ML
     Route: 050
     Dates: start: 20190206, end: 20190911

REACTIONS (7)
  - Hallucination [Unknown]
  - Freezing phenomenon [Unknown]
  - Stoma site erythema [Not Recovered/Not Resolved]
  - Hiatus hernia [Unknown]
  - Dyskinesia [Not Recovered/Not Resolved]
  - Colon operation [Recovering/Resolving]
  - Diplopia [Recovered/Resolved]

NARRATIVE: CASE EVENT DATE: 20190828
